FAERS Safety Report 17213789 (Version 1)
Quarter: 2019Q4

REPORT INFORMATION
  Report Type: Report from Study
  Country: CA (occurrence: CA)
  Receive Date: 20191230
  Receipt Date: 20191230
  Transmission Date: 20200122
  Serious: Yes (Other)
  Sender: FDA-Public Use
  Company Number: CA-PFIZER INC-2019556999

PATIENT
  Age: 65 Year
  Sex: Female

DRUGS (4)
  1. TECTA [Suspect]
     Active Substance: PANTOPRAZOLE MAGNESIUM
     Dosage: UNK
     Route: 065
     Dates: start: 20100101
  2. TELMISARTAN. [Concomitant]
     Active Substance: TELMISARTAN
     Dosage: 4 MILLIGRAM, QD
  3. ENTYVIO [Suspect]
     Active Substance: VEDOLIZUMAB
     Indication: CROHN^S DISEASE
     Dosage: 300 MILLIGRAM
     Route: 042
     Dates: start: 20160726
  4. ENTYVIO [Suspect]
     Active Substance: VEDOLIZUMAB
     Dosage: 300 MILLIGRAM CYCLIC (EVERY SIX WEEKS)
     Route: 042
     Dates: start: 20180905

REACTIONS (2)
  - Pain [Unknown]
  - Nephrolithiasis [Unknown]
